FAERS Safety Report 24563686 (Version 1)
Quarter: 2024Q4

REPORT INFORMATION
  Report Type: Spontaneous
  Country: GB (occurrence: GB)
  Receive Date: 20241030
  Receipt Date: 20241030
  Transmission Date: 20250114
  Serious: Yes (Disabling)
  Sender: ACCORD
  Company Number: None

PATIENT

DRUGS (1)
  1. OXYBUTYNIN [Suspect]
     Active Substance: OXYBUTYNIN
     Indication: Adverse drug reaction
     Dosage: 5 MG OD
     Dates: start: 20240916, end: 20240925

REACTIONS (1)
  - Limb discomfort [Recovered/Resolved]

NARRATIVE: CASE EVENT DATE: 20240917
